FAERS Safety Report 9904515 (Version 3)
Quarter: 2014Q2

REPORT INFORMATION
  Report Type: Spontaneous
  Country: DE (occurrence: DE)
  Receive Date: 20140218
  Receipt Date: 20140522
  Transmission Date: 20141212
  Serious: Yes (Hospitalization)
  Sender: FDA-Public Use
  Company Number: DE-JNJFOC-20140208716

PATIENT
  Age: 79 Year
  Sex: Female
  Weight: 68 kg

DRUGS (9)
  1. XARELTO [Suspect]
     Indication: ATRIAL FIBRILLATION
     Route: 048
     Dates: start: 201311, end: 20131209
  2. XARELTO [Suspect]
     Indication: CEREBROVASCULAR ACCIDENT PROPHYLAXIS
     Route: 048
     Dates: start: 201311, end: 20131209
  3. LYRICA [Concomitant]
     Route: 065
     Dates: start: 201311
  4. TARGIN [Concomitant]
     Route: 048
  5. CANDESARTAN [Concomitant]
     Route: 048
  6. METOPROLOL [Concomitant]
     Route: 048
  7. SITAGLIPTIN [Concomitant]
     Route: 048
  8. METAMIZOL [Concomitant]
     Route: 048
  9. SIMVASTATIN [Concomitant]
     Route: 048

REACTIONS (17)
  - Drug-induced liver injury [Recovered/Resolved]
  - Dyspnoea [Recovered/Resolved]
  - Abdominal pain [Recovered/Resolved]
  - Faeces discoloured [Recovered/Resolved]
  - Malaise [Recovered/Resolved]
  - Urine analysis abnormal [Recovered/Resolved]
  - Jaundice [Recovered/Resolved]
  - Aspartate aminotransferase increased [Recovering/Resolving]
  - Alanine aminotransferase increased [Recovering/Resolving]
  - Gamma-glutamyltransferase increased [Recovering/Resolving]
  - Hyperbilirubinaemia [Recovering/Resolving]
  - Blood lactate dehydrogenase increased [Recovering/Resolving]
  - Blood alkaline phosphatase increased [Recovering/Resolving]
  - Nausea [Recovered/Resolved]
  - Abdominal discomfort [Recovered/Resolved]
  - Gastritis [Recovered/Resolved]
  - Fungal oesophagitis [Recovered/Resolved]
